FAERS Safety Report 17022585 (Version 2)
Quarter: 2019Q4

REPORT INFORMATION
  Report Type: Report from Study
  Country: EG (occurrence: EG)
  Receive Date: 20191112
  Receipt Date: 20191115
  Transmission Date: 20200122
  Serious: Yes (Death, Hospitalization)
  Sender: FDA-Public Use
  Company Number: EG-SEATTLE GENETICS-2019SGN03909

PATIENT
  Sex: Female

DRUGS (1)
  1. BRENTUXIMAB VEDOTIN-MPI [Suspect]
     Active Substance: BRENTUXIMAB VEDOTIN
     Indication: HODGKIN^S DISEASE
     Dosage: UNK
     Route: 065
     Dates: start: 20191029, end: 20191110

REACTIONS (2)
  - Dyspnoea [Unknown]
  - Obstructive airways disorder [Fatal]
